FAERS Safety Report 23979762 (Version 2)
Quarter: 2024Q3

REPORT INFORMATION
  Report Type: Report from Study
  Country: AE (occurrence: AE)
  Receive Date: 20240616
  Receipt Date: 20240718
  Transmission Date: 20241017
  Serious: Yes (Hospitalization)
  Sender: ABBVIE
  Company Number: AE-ABBVIE-5802251

PATIENT
  Sex: Female
  Weight: 2.5 kg

DRUGS (3)
  1. RISANKIZUMAB [Suspect]
     Active Substance: RISANKIZUMAB
     Indication: Maternal exposure timing unspecified
     Route: 064
  2. VITAMIN D [Concomitant]
     Active Substance: VITAMIN D NOS
     Indication: Product used for unknown indication
     Dosage: START DATE: END OF MAR 2024 OR START OF APR 2024
     Dates: start: 2024, end: 2024
  3. VITAMIN D [Concomitant]
     Active Substance: VITAMIN D NOS
     Indication: Product used for unknown indication
     Dosage: START DATE: END OF MAY 2024 OR START OF JUN 2024
     Dates: start: 2024

REACTIONS (3)
  - Bradycardia foetal [Unknown]
  - Foetal exposure during pregnancy [Unknown]
  - Foetal growth restriction [Unknown]
